FAERS Safety Report 7404207-0 (Version None)
Quarter: 2011Q2

REPORT INFORMATION
  Report Type: 
  Country: None (occurrence: None)
  Receive Date: 20110408
  Receipt Date: 20110303
  Transmission Date: 20111010
  Serious: Yes (Hospitalization)
  Sender: FDA-Public Use
  Company Number: US-BAYER-2011-020919

PATIENT
  Age: 24 Year
  Sex: Female
  Weight: 129.25 kg

DRUGS (6)
  1. DUAC [Concomitant]
  2. YAZ [Suspect]
     Indication: CONTRACEPTION
     Dosage: UNK
     Dates: start: 20070324, end: 20080101
  3. TAZORAC [Concomitant]
  4. YAZ [Suspect]
     Indication: ACNE
  5. YAZ [Suspect]
     Indication: POLYCYSTIC OVARIES
  6. MINOCYCLINE [Concomitant]
     Dosage: 50 MG, QD

REACTIONS (4)
  - DEEP VEIN THROMBOSIS [None]
  - PULMONARY EMBOLISM [None]
  - PIGMENTATION DISORDER [None]
  - OEDEMA PERIPHERAL [None]
